FAERS Safety Report 24246752 (Version 2)
Quarter: 2024Q3

REPORT INFORMATION
  Report Type: Report from Study
  Country: AU (occurrence: AU)
  Receive Date: 20240826
  Receipt Date: 20240827
  Transmission Date: 20241017
  Serious: Yes (Hospitalization)
  Sender: ABBVIE
  Company Number: AU-ABBVIE-5854045

PATIENT
  Sex: Male

DRUGS (2)
  1. CARBIDOPA\LEVODOPA [Suspect]
     Active Substance: CARBIDOPA\LEVODOPA
     Indication: Parkinson^s disease
     Dosage: MORNING DOSE 8.0ML CONTINUOUS (DAY RATE) (0600-2200HR) 3.5ML/HR?CONTINUOUS (NIGHT RATE) (2200-060...
     Route: 050
     Dates: start: 20210609
  2. CARBIDOPA\LEVODOPA [Suspect]
     Active Substance: CARBIDOPA\LEVODOPA

REACTIONS (5)
  - Fall [Unknown]
  - Parkinson^s disease [Unknown]
  - Device issue [Unknown]
  - Hallucination [Unknown]
  - Confusional state [Unknown]
